FAERS Safety Report 13055979 (Version 1)
Quarter: 2016Q4

REPORT INFORMATION
  Report Type: Spontaneous
  Country: US (occurrence: US)
  Receive Date: 20161222
  Receipt Date: 20161222
  Transmission Date: 20170207
  Serious: No
  Sender: FDA-Public Use
  Company Number: US-BAYER-2016-236919

PATIENT
  Sex: Male
  Weight: 19.96 kg

DRUGS (1)
  1. KOGENATE FS [Suspect]
     Active Substance: ANTIHEMOPHILIC FACTOR, HUMAN RECOMBINANT
     Indication: HAEMOPHILIA
     Dosage: DOSE: 1000, OW
     Route: 042
     Dates: start: 20161012, end: 20161209

REACTIONS (1)
  - Treatment noncompliance [None]
